FAERS Safety Report 8435285-8 (Version None)
Quarter: 2012Q2

REPORT INFORMATION
  Report Type: 
  Country: None (occurrence: None)
  Receive Date: 20120614
  Receipt Date: 20120612
  Transmission Date: 20120825
  Serious: Yes (Other)
  Sender: FDA-Public Use
  Company Number: CA-PFIZER INC-2012141178

PATIENT
  Age: 47 Year
  Sex: Female

DRUGS (1)
  1. CORTEF [Suspect]
     Indication: ADRENAL INSUFFICIENCY
     Dosage: 2.5 MG, UNK

REACTIONS (3)
  - DIZZINESS [None]
  - CONFUSIONAL STATE [None]
  - COGNITIVE DISORDER [None]
